FAERS Safety Report 11418681 (Version 1)
Quarter: 2015Q3

REPORT INFORMATION
  Report Type: Spontaneous
  Country: US (occurrence: US)
  Receive Date: 20150826
  Receipt Date: 20150826
  Transmission Date: 20151125
  Serious: No
  Sender: FDA-Public Use
  Company Number: US-AMGEN-USASP2015086725

PATIENT
  Age: 44 Year
  Sex: Female

DRUGS (1)
  1. ENBREL [Suspect]
     Active Substance: ETANERCEPT
     Indication: RHEUMATOID ARTHRITIS
     Dosage: 50 MG, QWK
     Route: 065
     Dates: start: 20150724

REACTIONS (6)
  - Nausea [Unknown]
  - Urine odour abnormal [Unknown]
  - Back pain [Unknown]
  - Cystitis [Unknown]
  - Dysuria [Unknown]
  - Dizziness [Unknown]

NARRATIVE: CASE EVENT DATE: 2015
